FAERS Safety Report 19216547 (Version 1)
Quarter: 2021Q2

REPORT INFORMATION
  Report Type: Spontaneous
  Country: US (occurrence: US)
  Receive Date: 20210505
  Receipt Date: 20210505
  Transmission Date: 20210717
  Serious: Yes (Other)
  Sender: FDA-Public Use
  Company Number: US-ACORDA-ACO_168785_2021

PATIENT
  Sex: Female

DRUGS (1)
  1. AMPYRA [Suspect]
     Active Substance: DALFAMPRIDINE
     Indication: MULTIPLE SCLEROSIS
     Dosage: UNK, BID
     Route: 065

REACTIONS (6)
  - Gait disturbance [Unknown]
  - Musculoskeletal discomfort [Unknown]
  - Knee operation [Unknown]
  - Condition aggravated [Unknown]
  - Foot deformity [Unknown]
  - Arthralgia [Unknown]
